FAERS Safety Report 6718020-0 (Version None)
Quarter: 2010Q2

REPORT INFORMATION
  Report Type: 
  Country: None (occurrence: None)
  Receive Date: 20100510
  Receipt Date: 20100427
  Transmission Date: 20101027
  Serious: Yes (Hospitalization, Other)
  Sender: FDA-Public Use
  Company Number: PHHY2010DE27480

PATIENT
  Sex: Male

DRUGS (6)
  1. ALISKIREN ALI+ [Suspect]
     Indication: HYPERTENSION
     Dosage: UNK
  2. ALISKIREN ALI+ [Suspect]
     Dosage: UNK
     Dates: start: 20081125
  3. COTAREG [Suspect]
     Indication: HYPERTENSION
     Dosage: 1 DF/D
     Route: 048
     Dates: start: 20060922
  4. METFORMIN HYDROCHLORIDE [Concomitant]
     Indication: TYPE 2 DIABETES MELLITUS
     Dosage: 500 MG/D
     Route: 048
     Dates: start: 20061128
  5. BETA BLOCKING AGENTS [Concomitant]
  6. ANTICOAGULANTS [Concomitant]
     Route: 048

REACTIONS (10)
  - ANGIOGRAM [None]
  - BLOOD PRESSURE INCREASED [None]
  - CORONARY ARTERY DISEASE [None]
  - ELECTROCARDIOGRAM QRS COMPLEX PROLONGED [None]
  - HEART RATE INCREASED [None]
  - HYPERCHOLESTEROLAEMIA [None]
  - HYPERLIPIDAEMIA [None]
  - LEFT VENTRICULAR HYPERTROPHY [None]
  - NEPHROPATHY [None]
  - PULMONARY EMBOLISM [None]
